FAERS Safety Report 6824561-8 (Version None)
Quarter: 2010Q3

REPORT INFORMATION
  Report Type: 
  Country: None (occurrence: None)
  Receive Date: 20100708
  Receipt Date: 20061106
  Transmission Date: 20110219
  Serious: No
  Sender: FDA-Public Use
  Company Number: US-PFIZER INC-2006138797

PATIENT
  Sex: Female

DRUGS (1)
  1. CHANTIX [Suspect]
     Indication: EX-TOBACCO USER
     Dates: start: 20061027

REACTIONS (4)
  - DYSARTHRIA [None]
  - INSOMNIA [None]
  - NAUSEA [None]
  - RESTLESS LEGS SYNDROME [None]
